FAERS Safety Report 15268282 (Version 1)
Quarter: 2018Q3

REPORT INFORMATION
  Report Type: Spontaneous
  Country: US (occurrence: US)
  Receive Date: 20180725
  Receipt Date: 20180725
  Transmission Date: 20181010
  Serious: Yes (Death, Hospitalization)
  Sender: FDA-Public Use
  Company Number: None

PATIENT
  Age: 47 Year
  Sex: Male
  Weight: 70 kg

DRUGS (2)
  1. 5?FLUOROURACIL (5?FU) [Suspect]
     Active Substance: FLUOROURACIL
     Dates: end: 20180625
  2. CISPLATIN. [Suspect]
     Active Substance: CISPLATIN
     Dates: end: 20180622

REACTIONS (2)
  - Thrombocytopenia [None]
  - Internal haemorrhage [None]

NARRATIVE: CASE EVENT DATE: 20180701
